FAERS Safety Report 7562187-1 (Version None)
Quarter: 2011Q2

REPORT INFORMATION
  Report Type: 
  Country: None (occurrence: None)
  Receive Date: 20110620
  Receipt Date: 20110620
  Transmission Date: 20111010
  Serious: Yes (Death)
  Sender: FDA-Public Use
  Company Number: None

PATIENT
  Age: 55 Year
  Sex: Female

DRUGS (9)
  1. REVLIMID [Suspect]
     Indication: MULTIPLE MYELOMA
     Dosage: REVLIMID 10MG DAILY ORALLY
     Route: 048
     Dates: start: 20101101, end: 20110101
  2. REVLIMID [Suspect]
     Indication: MULTIPLE MYELOMA
     Dosage: REVLIMID 10MG DAILY ORALLY
     Route: 048
     Dates: start: 20100401
  3. REVLIMID [Suspect]
     Indication: MULTIPLE MYELOMA
     Dosage: REVLIMID 10MG DAILY ORALLY
     Route: 048
     Dates: start: 20090901, end: 20100101
  4. GABAPENTIN [Concomitant]
  5. PEGFILGRASTIM [Concomitant]
  6. PROCHLORPERAZINE TAB [Concomitant]
  7. MORPHINE [Concomitant]
  8. HYDROCODONE BITARTRATE AND ACETAMINOPHEN [Concomitant]
  9. OMEPRAZOLE [Concomitant]

REACTIONS (5)
  - HYPERLIPIDAEMIA [None]
  - BACK PAIN [None]
  - PNEUMONIA [None]
  - DEPRESSION [None]
  - ANXIETY [None]
